FAERS Safety Report 4943694-4 (Version None)
Quarter: 2006Q1

REPORT INFORMATION
  Report Type: 
  Country: None (occurrence: None)
  Receive Date: 20060314
  Receipt Date: 20051004
  Transmission Date: 20060701
  Serious: Yes (Hospitalization)
  Sender: FDA-Public Use
  Company Number: US-MERCK-0510USA02594

PATIENT
  Age: 52 Year
  Sex: Male
  Weight: 95 kg

DRUGS (1)
  1. VIOXX [Suspect]
     Indication: ARTHRITIS
     Route: 048
     Dates: start: 20030328, end: 20040309

REACTIONS (12)
  - ARRHYTHMIA [None]
  - ARTHRALGIA [None]
  - CHEST DISCOMFORT [None]
  - CHEST PAIN [None]
  - CORONARY ARTERY DISEASE [None]
  - DIZZINESS [None]
  - EXTRASYSTOLES [None]
  - JOINT STIFFNESS [None]
  - MYOCARDIAL INFARCTION [None]
  - PALPITATIONS [None]
  - PNEUMONIA [None]
  - VENTRICULAR TACHYCARDIA [None]
